FAERS Safety Report 5297984-9 (Version None)
Quarter: 2007Q2

REPORT INFORMATION
  Report Type: 
  Country: None (occurrence: None)
  Receive Date: 20070416
  Receipt Date: 20070406
  Transmission Date: 20071010
  Serious: Yes (Hospitalization)
  Sender: FDA-Public Use
  Company Number: US-ROCHE-471002

PATIENT
  Age: 71 Year
  Sex: Female
  Weight: 61.2 kg

DRUGS (11)
  1. BONIVA [Suspect]
     Indication: OSTEOPOROSIS PROPHYLAXIS
     Route: 048
     Dates: start: 20060901, end: 20060901
  2. ANALGESICS [Suspect]
     Indication: PAIN
     Route: 065
  3. NARCOTIC ANALGESIC NOS [Suspect]
     Indication: PAIN
     Route: 065
  4. THYROID HORMONE NOS [Concomitant]
  5. ADVAIR DISKUS 100/50 [Concomitant]
     Dosage: ADVAIR 250/50
  6. SINGULAIR [Concomitant]
  7. ASPIRIN [Concomitant]
  8. VITAMINS NOS [Concomitant]
  9. ASCORBIC ACID [Concomitant]
  10. CALCIUM [Concomitant]
  11. GLUCOSAMINE [Concomitant]

REACTIONS (12)
  - ARTHRALGIA [None]
  - ARTHRITIS [None]
  - CARDIAC DISORDER [None]
  - DEPRESSION [None]
  - FATIGUE [None]
  - INFLUENZA LIKE ILLNESS [None]
  - JOINT SWELLING [None]
  - LETHARGY [None]
  - MYELITIS TRANSVERSE [None]
  - NAUSEA [None]
  - SOMNOLENCE [None]
  - VOMITING [None]
